FAERS Safety Report 20304448 (Version 1)
Quarter: 2022Q1

REPORT INFORMATION
  Report Type: Spontaneous
  Country: US (occurrence: US)
  Receive Date: 20220106
  Receipt Date: 20220106
  Transmission Date: 20220423
  Serious: Yes (Hospitalization, Other)
  Sender: FDA-Public Use
  Company Number: US-BAYER-2022A000976

PATIENT

DRUGS (2)
  1. TINACTIN [Suspect]
     Active Substance: TOLNAFTATE
     Indication: Tinea pedis
     Dosage: 1 DF, BID, FOR 2 WEEKS SPRAYING FEET AND BETWEEN TOES.
     Route: 061
     Dates: start: 20200129, end: 20200531
  2. TASIGNA [Concomitant]
     Active Substance: NILOTINIB
     Dosage: UNK
     Dates: start: 202102

REACTIONS (6)
  - Chronic myeloid leukaemia [None]
  - Adverse drug reaction [None]
  - Platelet count increased [None]
  - Urticaria [None]
  - Adverse reaction [None]
  - Recalled product administered [None]

NARRATIVE: CASE EVENT DATE: 20200101
